FAERS Safety Report 23880394 (Version 2)
Quarter: 2025Q1

REPORT INFORMATION
  Report Type: Spontaneous
  Country: AU (occurrence: AU)
  Receive Date: 20240521
  Receipt Date: 20250108
  Transmission Date: 20250409
  Serious: Yes (Death, Hospitalization, Other)
  Sender: SANOFI AVENTIS
  Company Number: AU-SA-SAC20240520001377

PATIENT
  Age: 75 Year
  Sex: Male
  Weight: 116 kg

DRUGS (41)
  1. AMIODARONE HYDROCHLORIDE [Suspect]
     Active Substance: AMIODARONE HYDROCHLORIDE
     Route: 048
     Dates: start: 20230806
  2. METOPROLOL TARTRATE [Suspect]
     Active Substance: METOPROLOL TARTRATE
     Dates: start: 20230813
  3. AZITHROMYCIN [Suspect]
     Active Substance: AZITHROMYCIN
     Dates: start: 20230806, end: 20230810
  4. DEXAMETHASONE [Suspect]
     Active Substance: DEXAMETHASONE
     Dates: start: 20230807, end: 20230816
  5. FUROSEMIDE [Suspect]
     Active Substance: FUROSEMIDE
     Dates: start: 20230806, end: 20230809
  6. ENOXAPARIN SODIUM [Suspect]
     Active Substance: ENOXAPARIN SODIUM
     Dates: start: 20230806, end: 20230817
  7. ACETAMINOPHEN [Suspect]
     Active Substance: ACETAMINOPHEN
     Dates: start: 20230807
  8. ACTRAPID [Suspect]
     Active Substance: INSULIN HUMAN
     Dates: start: 20230806
  9. DEXTROSE MONOHYDRATE [Suspect]
     Active Substance: DEXTROSE MONOHYDRATE
     Dates: start: 20230816
  10. MOVICOL [Suspect]
     Active Substance: POLYETHYLENE GLYCOL 3350\POTASSIUM CHLORIDE\SODIUM BICARBONATE\SODIUM CHLORIDE
     Dates: start: 20230808, end: 20230809
  11. PIPERACILLIN SODIUM\TAZOBACTAM SODIUM [Suspect]
     Active Substance: PIPERACILLIN SODIUM\TAZOBACTAM SODIUM
  12. ACYCLOVIR [Suspect]
     Active Substance: ACYCLOVIR
     Dates: start: 20230816, end: 20230817
  13. ATOVAQUONE [Suspect]
     Active Substance: ATOVAQUONE
     Dates: start: 20230807, end: 20230809
  14. CALCIUM CHLORIDE [Suspect]
     Active Substance: CALCIUM CHLORIDE
     Dates: start: 20230811, end: 20230813
  15. CALCIUM GLUCONATE MONOHYDRATE [Suspect]
     Active Substance: CALCIUM GLUCONATE MONOHYDRATE
  16. CEFTRIAXONE [Suspect]
     Active Substance: CEFTRIAXONE
     Dates: start: 20230806, end: 20230806
  17. DIGOXIN [Suspect]
     Active Substance: DIGOXIN
     Dates: start: 20230812, end: 20230817
  18. ESOMEPRAZOLE [Suspect]
     Active Substance: ESOMEPRAZOLE
     Dates: start: 20230806, end: 20230816
  19. FENTANYL [Suspect]
     Active Substance: FENTANYL
     Dates: start: 20230806, end: 20230817
  20. HYDROCORTISONE [Suspect]
     Active Substance: HYDROCORTISONE
     Dates: start: 20230806, end: 20230806
  21. IPRATROPIUM BROMIDE [Suspect]
     Active Substance: IPRATROPIUM BROMIDE
     Dates: start: 20230809, end: 20230809
  22. KETAMINE HYDROCHLORIDE [Suspect]
     Active Substance: KETAMINE HYDROCHLORIDE
     Dates: start: 20230806, end: 20230809
  23. MAGNESIUM SULFATE HEPTAHYDRATE [Suspect]
     Active Substance: MAGNESIUM SULFATE HEPTAHYDRATE
     Dates: start: 20230809, end: 20230809
  24. METARAMINOL BITARTRATE [Suspect]
     Active Substance: METARAMINOL BITARTRATE
     Dates: start: 20230806, end: 20230815
  25. METOCLOPRAMIDE [Suspect]
     Active Substance: METOCLOPRAMIDE
     Dates: start: 20230810, end: 20230813
  26. MIDAZOLAM [Suspect]
     Active Substance: MIDAZOLAM
     Dates: start: 20230806, end: 20230817
  27. POTASSIUM PHOSPHATE, MONOBASIC [Suspect]
     Active Substance: POTASSIUM PHOSPHATE, MONOBASIC
     Dates: start: 20230809, end: 20230809
  28. MORPHINE [Suspect]
     Active Substance: MORPHINE
     Dates: start: 20230817, end: 20230817
  29. NITRIC OXIDE [Suspect]
     Active Substance: NITRIC OXIDE
     Dates: start: 20230806, end: 20230810
  30. NOREPINEPHRINE BITARTRATE [Suspect]
     Active Substance: NOREPINEPHRINE BITARTRATE
     Dates: start: 20230807, end: 20230816
  31. POTASSIUM CHLORIDE [Suspect]
     Active Substance: POTASSIUM CHLORIDE
     Dates: start: 20230807, end: 20230809
  32. PROPOFOL [Suspect]
     Active Substance: PROPOFOL
     Dates: start: 20230806, end: 20230815
  33. REMDESIVIR [Suspect]
     Active Substance: REMDESIVIR
     Dates: start: 20230807, end: 20230811
  34. ROCURONIUM BROMIDE [Suspect]
     Active Substance: ROCURONIUM BROMIDE
     Dates: start: 20230806, end: 20230809
  35. ALBUTEROL SULFATE [Suspect]
     Active Substance: ALBUTEROL SULFATE
     Dates: start: 20230812, end: 20230817
  36. SENNOSIDES [Suspect]
     Active Substance: SENNOSIDES
     Dates: start: 20230808, end: 20230809
  37. SODIUM CHLORIDE [Suspect]
     Active Substance: SODIUM CHLORIDE
     Dates: start: 20230809, end: 20230815
  38. THIAMINE HYDROCHLORIDE [Suspect]
     Active Substance: THIAMINE HYDROCHLORIDE
     Dates: start: 20230817, end: 20230817
  39. SULFAMETHOXAZOLE\TRIMETHOPRIM [Suspect]
     Active Substance: SULFAMETHOXAZOLE\TRIMETHOPRIM
     Dates: start: 20230807, end: 20230807
  40. VANCOMYCIN [Suspect]
     Active Substance: VANCOMYCIN
     Dates: start: 20230813, end: 20230813
  41. MABTHERA [Concomitant]
     Active Substance: RITUXIMAB

REACTIONS (3)
  - Death [Fatal]
  - Respiratory failure [Fatal]
  - Condition aggravated [Fatal]

NARRATIVE: CASE EVENT DATE: 20230806
